FAERS Safety Report 8589608-X (Version None)
Quarter: 2012Q3

REPORT INFORMATION
  Report Type: 
  Country: None (occurrence: None)
  Receive Date: 20120813
  Receipt Date: 20120806
  Transmission Date: 20120928
  Serious: Yes (Death, Hospitalization)
  Sender: FDA-Public Use
  Company Number: FR-GILEAD-2012-0059351

PATIENT
  Sex: Male

DRUGS (11)
  1. VIDEX [Suspect]
     Indication: HIV INFECTION
     Dosage: UNK
     Route: 048
     Dates: end: 20110527
  2. PREZISTA [Suspect]
     Indication: HIV INFECTION
     Dosage: 800 MG, QD
     Route: 048
     Dates: end: 20110601
  3. NORVIR [Suspect]
     Indication: HIV INFECTION
     Dosage: 1 DF, QD
     Route: 048
     Dates: end: 20110601
  4. ASPIRIN [Concomitant]
     Indication: PRODUCT USED FOR UNKNOWN INDICATION
  5. CLOMIPRAMINE HCL [Concomitant]
     Indication: PRODUCT USED FOR UNKNOWN INDICATION
     Dosage: UNK
  6. CRESTOR [Concomitant]
     Indication: PRODUCT USED FOR UNKNOWN INDICATION
  7. INTELENCE [Suspect]
     Indication: HIV INFECTION
     Dosage: 400 MG, QD
     Route: 048
     Dates: start: 20110527, end: 20110601
  8. MOPRAL                             /00661201/ [Concomitant]
     Indication: PRODUCT USED FOR UNKNOWN INDICATION
  9. VIREAD [Suspect]
     Indication: HIV INFECTION
     Dosage: UNK
     Route: 048
     Dates: end: 20110527
  10. SUPRANE [Concomitant]
     Indication: PRODUCT USED FOR UNKNOWN INDICATION
  11. ISENTRESS [Suspect]
     Indication: HIV INFECTION
     Dosage: 800 MG, QD
     Route: 048
     Dates: start: 20110527, end: 20110601

REACTIONS (2)
  - FANCONI SYNDROME ACQUIRED [None]
  - RENAL FAILURE ACUTE [None]
